FAERS Safety Report 9414907 (Version 1)
Quarter: 2013Q3

REPORT INFORMATION
  Report Type: Report from Study
  Country: US (occurrence: US)
  Receive Date: 20130723
  Receipt Date: 20130723
  Transmission Date: 20140515
  Serious: Yes (Other)
  Sender: FDA-Public Use
  Company Number: US-ABBOTT-13P-163-1119634-00

PATIENT
  Age: 59 Year
  Sex: Male
  Weight: 93.52 kg

DRUGS (5)
  1. NIASPAN (COATED) [Suspect]
     Indication: HIGH DENSITY LIPOPROTEIN DECREASED
     Dosage: 500 MG ONE AT BEDTIME
     Route: 048
  2. NIASPAN (COATED) [Suspect]
     Indication: LOW DENSITY LIPOPROTEIN INCREASED
  3. IRDESARTAN [Concomitant]
     Indication: PRODUCT USED FOR UNKNOWN INDICATION
     Dosage: DAILY
     Route: 048
  4. HYDROCHLOROTHIAZIDE [Concomitant]
     Indication: PRODUCT USED FOR UNKNOWN INDICATION
     Dosage: DAILY
     Route: 048
  5. VITAMIN D NOS [Concomitant]
     Indication: PRODUCT USED FOR UNKNOWN INDICATION
     Route: 048

REACTIONS (2)
  - Cataract [Recovered/Resolved]
  - Dizziness [Not Recovered/Not Resolved]
